FAERS Safety Report 12010511 (Version 2)
Quarter: 2016Q1

REPORT INFORMATION
  Report Type: Report from Study
  Country: NL (occurrence: NL)
  Receive Date: 20160205
  Receipt Date: 20160317
  Transmission Date: 20160526
  Serious: Yes (Death, Hospitalization, Other)
  Sender: FDA-Public Use
  Company Number: NL-AMGEN-NLDSL2016011381

PATIENT
  Age: 72 Year
  Sex: Female

DRUGS (5)
  1. DEXAMETASON                        /00016001/ [Concomitant]
  2. XGEVA [Suspect]
     Active Substance: DENOSUMAB
     Dosage: UNK
     Route: 058
  3. CALCI CHEW [Concomitant]
  4. XGEVA [Suspect]
     Active Substance: DENOSUMAB
     Indication: PROPHYLAXIS
     Dosage: 120 MG (1.70 ML), Q4WK
     Route: 058
  5. XGEVA [Suspect]
     Active Substance: DENOSUMAB
     Dosage: UNK
     Route: 058

REACTIONS (6)
  - Visual impairment [Not Recovered/Not Resolved]
  - Chemotherapy [Unknown]
  - Limb discomfort [Unknown]
  - Metastases to central nervous system [Not Recovered/Not Resolved]
  - Facial paralysis [Not Recovered/Not Resolved]
  - Neoplasm malignant [Fatal]

NARRATIVE: CASE EVENT DATE: 20151226
